FAERS Safety Report 7082003-4 (Version None)
Quarter: 2010Q4

REPORT INFORMATION
  Report Type: 
  Country: None (occurrence: None)
  Receive Date: 20101103
  Receipt Date: 20101026
  Transmission Date: 20110411
  Serious: Yes (Other)
  Sender: FDA-Public Use
  Company Number: JP-PFIZER INC-2010122682

PATIENT
  Age: 73 Year
  Sex: Male
  Weight: 53 kg

DRUGS (6)
  1. VFEND [Suspect]
     Indication: ASPERGILLOSIS
     Dosage: UNK
     Route: 065
     Dates: end: 20100917
  2. AMBISOME [Suspect]
     Indication: MUCORMYCOSIS
     Dosage: 250 MG, 1X/DAY
     Route: 042
     Dates: start: 20100907, end: 20100918
  3. GABAPENTIN [Concomitant]
     Indication: PAIN
     Dosage: 200 MG, 3X/DAY
     Route: 048
  4. AMITRIPTYLINE HCL [Concomitant]
     Indication: PAIN
     Dosage: 30 MG, 1X/DAY
     Route: 048
  5. TOPIRAMATE [Concomitant]
     Indication: PAIN
     Dosage: 100 MG, 4X/DAY
     Route: 048
  6. VOLTAREN [Concomitant]
     Indication: PAIN
     Dosage: 25 MG, 2X/DAY
     Route: 054

REACTIONS (3)
  - DRUG INEFFECTIVE [None]
  - PANCYTOPENIA [None]
  - SEPTIC SHOCK [None]
